FAERS Safety Report 7754379-3 (Version None)
Quarter: 2011Q3

REPORT INFORMATION
  Report Type: 
  Country: None (occurrence: None)
  Receive Date: 20110915
  Receipt Date: 20110909
  Transmission Date: 20111222
  Serious: Yes (Death)
  Sender: FDA-Public Use
  Company Number: US-CELGENEUS-163-21880-11091190

PATIENT
  Age: 72 Year
  Sex: Male
  Weight: 74 kg

DRUGS (7)
  1. MELPHALAN [Suspect]
     Dosage: 5 MILLIGRAM/SQ. METER
     Route: 048
     Dates: start: 20090416
  2. REVLIMID [Suspect]
     Dosage: 10 MILLIGRAM
     Route: 048
     Dates: start: 20091029, end: 20091118
  3. MELPHALAN [Suspect]
     Dosage: 5 MILLIGRAM/SQ. METER
     Route: 065
     Dates: start: 20091029
  4. PREDNISONE [Suspect]
     Dosage: 100 MILLIGRAM
     Route: 048
     Dates: start: 20090416
  5. ASPIRIN [Concomitant]
     Dosage: 325 MILLIGRAM
     Route: 048
     Dates: start: 20090416
  6. REVLIMID [Suspect]
     Dosage: 10 MILLIGRAM
     Route: 048
     Dates: start: 20090416
  7. PREDNISONE [Suspect]
     Dosage: 100 MILLIGRAM
     Route: 048
     Dates: start: 20091029

REACTIONS (1)
  - LUNG SQUAMOUS CELL CARCINOMA STAGE UNSPECIFIED [None]
